APPROVED DRUG PRODUCT: TRICLOS
Active Ingredient: TRICLOFOS SODIUM
Strength: 1.5GM/15ML
Dosage Form/Route: SOLUTION;ORAL
Application: N016830 | Product #001
Applicant: SANOFI AVENTIS US LLC
Approved: Approved Prior to Jan 1, 1982 | RLD: No | RS: No | Type: DISCN